FAERS Safety Report 15393258 (Version 1)
Quarter: 2018Q3

REPORT INFORMATION
  Report Type: Other
  Country: US (occurrence: US)
  Receive Date: 20180917
  Receipt Date: 20180917
  Transmission Date: 20181010
  Serious: No
  Sender: FDA-Public Use
  Company Number: US-LEADIANT BIOSCIENCES INC-2017STPI000599

PATIENT
  Sex: Female

DRUGS (12)
  1. ACYCLOVIR                          /00587301/ [Concomitant]
     Active Substance: ACYCLOVIR
  2. ALPRAZOLAM. [Concomitant]
     Active Substance: ALPRAZOLAM
  3. HYDROCODONE [Concomitant]
     Active Substance: HYDROCODONE
  4. POTASSIUM [Concomitant]
     Active Substance: POTASSIUM
  5. ALLOPURINOL. [Concomitant]
     Active Substance: ALLOPURINOL
  6. BIOTIN [Concomitant]
     Active Substance: BIOTIN
  7. MULTIVITAMIN                       /00097801/ [Concomitant]
     Active Substance: VITAMINS
  8. MATULANE [Suspect]
     Active Substance: PROCARBAZINE HYDROCHLORIDE
     Indication: NON-HODGKIN^S LYMPHOMA
     Dosage: 50 MG, UNK
     Route: 048
     Dates: start: 20170513
  9. CALCIUM [Concomitant]
     Active Substance: CALCIUM
  10. GABAPENTIN. [Concomitant]
     Active Substance: GABAPENTIN
  11. OMEPRAZOLE. [Concomitant]
     Active Substance: OMEPRAZOLE
  12. ONDANSETRON [Concomitant]
     Active Substance: ONDANSETRON

REACTIONS (1)
  - Stomatitis [Not Recovered/Not Resolved]
